FAERS Safety Report 4946071-5 (Version None)
Quarter: 2006Q1

REPORT INFORMATION
  Report Type: 
  Country: None (occurrence: None)
  Receive Date: 20060118
  Receipt Date: 20050119
  Transmission Date: 20060701
  Serious: Yes (Other)
  Sender: FDA-Public Use
  Company Number: BDI-006836

PATIENT
  Sex: Female

DRUGS (1)
  1. PROHANCE [Suspect]
     Indication: NUCLEAR MAGNETIC RESONANCE IMAGING
     Dosage: IV
     Route: 042
     Dates: start: 20050114, end: 20050114

REACTIONS (1)
  - URTICARIA [None]
